FAERS Safety Report 10520825 (Version 1)
Quarter: 2014Q4

REPORT INFORMATION
  Report Type: Report from Study
  Country: US (occurrence: US)
  Receive Date: 20141015
  Receipt Date: 20141015
  Transmission Date: 20150528
  Serious: Yes (Death)
  Sender: FDA-Public Use
  Company Number: PHEH2014US020545

PATIENT
  Age: 87 Year
  Sex: Female
  Weight: 68.93 kg

DRUGS (1)
  1. EXJADE [Suspect]
     Active Substance: DEFERASIROX
     Indication: HAEMOCHROMATOSIS
     Dosage: 500 MG, QD
     Route: 048
     Dates: start: 20140115

REACTIONS (1)
  - Death [Fatal]

NARRATIVE: CASE EVENT DATE: 20141003
